FAERS Safety Report 5470491-6 (Version None)
Quarter: 2007Q3

REPORT INFORMATION
  Report Type: 
  Country: None (occurrence: None)
  Receive Date: 20070820
  Receipt Date: 20070613
  Transmission Date: 20080115
  Serious: No
  Sender: FDA-Public Use
  Company Number: WAES 0706USA02573

PATIENT

DRUGS (3)
  1. JANUVIA [Suspect]
     Indication: DIABETES MELLITUS
     Dosage: PO
     Route: 048
  2. JANUMET [Suspect]
     Dosage: PO
     Route: 048
  3. METFORMIN HCL [Concomitant]

REACTIONS (2)
  - DIARRHOEA [None]
  - NAUSEA [None]
